FAERS Safety Report 8395922-3 (Version None)
Quarter: 2012Q2

REPORT INFORMATION
  Report Type: 
  Country: None (occurrence: None)
  Receive Date: 20120530
  Receipt Date: 20120521
  Transmission Date: 20120825
  Serious: Yes (Disabling, Other)
  Sender: FDA-Public Use
  Company Number: US-ELI_LILLY_AND_COMPANY-US201205008056

PATIENT
  Sex: Male

DRUGS (3)
  1. HUMULIN R [Suspect]
     Dosage: UNK UNK, PRN
     Dates: end: 20120521
  2. HUMULIN N [Suspect]
     Indication: DIABETES MELLITUS
     Dosage: UNK
     Dates: end: 20120521
  3. HUMULIN R [Suspect]
     Indication: DIABETES MELLITUS
     Dosage: UNK UNK, PRN
     Dates: end: 20120521

REACTIONS (7)
  - GAIT DISTURBANCE [None]
  - HYPERSENSITIVITY [None]
  - DYSPNOEA [None]
  - COUGH [None]
  - BLOOD GLUCOSE INCREASED [None]
  - ASPERGILLOSIS [None]
  - DRUG INEFFECTIVE [None]
